FAERS Safety Report 18940903 (Version 1)
Quarter: 2021Q1

REPORT INFORMATION
  Report Type: Spontaneous
  Country: US (occurrence: US)
  Receive Date: 20210225
  Receipt Date: 20210225
  Transmission Date: 20210420
  Serious: No
  Sender: FDA-Public Use
  Company Number: US-009507513-2102USA001282

PATIENT
  Age: 59 Year
  Sex: Female

DRUGS (12)
  1. TEMODAR [Suspect]
     Active Substance: TEMOZOLOMIDE
     Indication: PLEOMORPHIC LEIOMYOSARCOMA
  2. TEMODAR [Suspect]
     Active Substance: TEMOZOLOMIDE
     Indication: UTERINE LEIOMYOSARCOMA
  3. GEMCITABINE. [Concomitant]
     Active Substance: GEMCITABINE
     Indication: ADJUVANT THERAPY
     Dosage: UNK, 11 CYCLES
  4. DOCETAXEL. [Concomitant]
     Active Substance: DOCETAXEL
     Indication: ADJUVANT THERAPY
     Dosage: UNK, 11 CYCLES
  5. KEYTRUDA [Suspect]
     Active Substance: PEMBROLIZUMAB
     Indication: UTERINE LEIOMYOSARCOMA
  6. KEYTRUDA [Suspect]
     Active Substance: PEMBROLIZUMAB
     Indication: LEIOMYOSARCOMA METASTATIC
  7. KEYTRUDA [Suspect]
     Active Substance: PEMBROLIZUMAB
     Indication: PLEOMORPHIC LEIOMYOSARCOMA
  8. GEMCITABINE. [Concomitant]
     Active Substance: GEMCITABINE
     Indication: UTERINE LEIOMYOSARCOMA
  9. TEMODAR [Suspect]
     Active Substance: TEMOZOLOMIDE
     Indication: MICROSATELLITE INSTABILITY CANCER
     Dosage: 5 DAYS MONTHLY; 3 CYCLES
     Route: 048
  10. KEYTRUDA [Suspect]
     Active Substance: PEMBROLIZUMAB
     Indication: LEIOMYOSARCOMA RECURRENT
  11. KEYTRUDA [Suspect]
     Active Substance: PEMBROLIZUMAB
     Indication: MICROSATELLITE INSTABILITY CANCER
     Dosage: 2 MG/KG EVERY 3 WEEKS; 7 CYCLES
  12. DOCETAXEL. [Concomitant]
     Active Substance: DOCETAXEL
     Indication: UTERINE LEIOMYOSARCOMA

REACTIONS (1)
  - Off label use [Unknown]
